FAERS Safety Report 8153974-X (Version None)
Quarter: 2012Q1

REPORT INFORMATION
  Report Type: 
  Country: None (occurrence: None)
  Receive Date: 20120221
  Receipt Date: 20120221
  Transmission Date: 20120608
  Serious: Yes (Hospitalization, Other)
  Sender: FDA-Public Use
  Company Number: None

PATIENT
  Age: 45 Year
  Sex: Male
  Weight: 142.42 kg

DRUGS (1)
  1. AMPHETAMINE AND DEXTROAMPHETAMINE SALTS [Suspect]
     Route: 048
     Dates: start: 20120214, end: 20120217

REACTIONS (3)
  - TREMOR [None]
  - HEART RATE INCREASED [None]
  - BLOOD PRESSURE INCREASED [None]
